FAERS Safety Report 4434590-X (Version None)
Quarter: 2004Q3

REPORT INFORMATION
  Report Type: 
  Country: None (occurrence: None)
  Receive Date: 20040721
  Receipt Date: 20031007
  Transmission Date: 20050211
  Serious: Yes (Other)
  Sender: FDA-Public Use
  Company Number: WAES 0310USA01071

PATIENT
  Age: 52 Year
  Sex: Male
  Weight: 79.8331 kg

DRUGS (5)
  1. VIOXX [Suspect]
     Indication: NERVE COMPRESSION
     Dosage: 12.5 MG/DAILY/PO
     Route: 048
  2. VIOXX [Suspect]
     Indication: PAIN
     Dosage: 12.5 MG/DAILY/PO
     Route: 048
  3. MONOPRIL [Suspect]
     Indication: BLOOD PRESSURE INCREASED
  4. WELLBUTRIN [Concomitant]
  5. XANAX [Concomitant]

REACTIONS (3)
  - DRUG INEFFECTIVE [None]
  - FACE OEDEMA [None]
  - HYPERTENSION [None]
